FAERS Safety Report 7431900-6 (Version None)
Quarter: 2011Q2

REPORT INFORMATION
  Report Type: 
  Country: None (occurrence: None)
  Receive Date: 20110422
  Receipt Date: 20110419
  Transmission Date: 20111010
  Serious: Yes (Life-Threatening)
  Sender: FDA-Public Use
  Company Number: FR-PFIZER INC-2011084962

PATIENT
  Age: 80 Year
  Sex: Male

DRUGS (9)
  1. CORDARONE [Concomitant]
     Dosage: 200 MG, UNK
  2. CARDENSIEL [Concomitant]
     Dosage: 2.5 MG, UNK
  3. MEDROL [Interacting]
     Dosage: UNK
     Route: 048
     Dates: start: 20100901, end: 20100909
  4. ALLOPURINOL [Concomitant]
     Dosage: UNK
  5. PRAVASTATIN SODIUM [Concomitant]
  6. LEXOMIL [Concomitant]
  7. CHONDROSULF [Concomitant]
     Dosage: UNK
  8. PREVISCAN [Interacting]
     Indication: ATRIAL FIBRILLATION
     Dosage: 1 TABLET ON TUESDAYS AND FRIDAYS AND A? TABLET THE OTHER DAYS
     Route: 048
     Dates: start: 20060401, end: 20100909
  9. MEDROL [Suspect]
     Indication: OSTEOARTHRITIS
     Dosage: UNK
     Dates: start: 20090901

REACTIONS (3)
  - MUSCLE HAEMORRHAGE [None]
  - DRUG INTERACTION [None]
  - ANAEMIA [None]
